FAERS Safety Report 6260413-2 (Version None)
Quarter: 2009Q3

REPORT INFORMATION
  Report Type: 
  Country: None (occurrence: None)
  Receive Date: 20090708
  Receipt Date: 20090629
  Transmission Date: 20100115
  Serious: Yes (Disabling)
  Sender: FDA-Public Use
  Company Number: US-MERCK-0906USA04364

PATIENT
  Age: 11 Year
  Sex: Male
  Weight: 50 kg

DRUGS (3)
  1. SINGULAIR [Suspect]
     Indication: RHINITIS ALLERGIC
     Route: 048
     Dates: start: 20090101, end: 20090101
  2. SINGULAIR [Suspect]
     Indication: BRONCHIAL HYPERREACTIVITY
     Route: 048
     Dates: start: 20090101, end: 20090101
  3. TYLENOL (CAPLET) [Concomitant]
     Route: 065

REACTIONS (3)
  - ABNORMAL BEHAVIOUR [None]
  - DEPRESSION [None]
  - IRRITABILITY [None]
